FAERS Safety Report 24961653 (Version 1)
Quarter: 2025Q1

REPORT INFORMATION
  Report Type: Spontaneous
  Country: US (occurrence: US)
  Receive Date: 20250212
  Receipt Date: 20250212
  Transmission Date: 20250409
  Serious: Yes (Life-Threatening)
  Sender: PURDUE
  Company Number: US-PURDUE PHARMA-USA-2025-0315418

PATIENT
  Sex: Male

DRUGS (1)
  1. BUPRENORPHINE [Suspect]
     Active Substance: BUPRENORPHINE
     Indication: Product used for unknown indication
     Route: 048

REACTIONS (4)
  - Brief resolved unexplained event [Unknown]
  - Injury [Unknown]
  - Suspected counterfeit product [Unknown]
  - Suspected product contamination [Unknown]
